FAERS Safety Report 8261513-8 (Version None)
Quarter: 2012Q2

REPORT INFORMATION
  Report Type: 
  Country: None (occurrence: None)
  Receive Date: 20120405
  Receipt Date: 20120330
  Transmission Date: 20120825
  Serious: Yes (Death, Hospitalization, Other)
  Sender: FDA-Public Use
  Company Number: JP-ASTELLAS-2011JP009072

PATIENT
  Sex: Male
  Weight: 64.6 kg

DRUGS (22)
  1. PROGRAF [Suspect]
     Indication: PROPHYLAXIS AGAINST GRAFT VERSUS HOST DISEASE
     Dosage: 0.06 MG, UID/QD
     Route: 041
     Dates: start: 20111121, end: 20111123
  2. DEPAKENE [Concomitant]
     Indication: EPILEPSY
     Dosage: 200 MG, BID
     Route: 048
     Dates: start: 20071001, end: 20111120
  3. VITAMEDIN [Concomitant]
     Indication: HYPOVITAMINOSIS
     Dosage: 25 MG, BID
     Route: 048
     Dates: start: 20110222, end: 20111120
  4. GLYCYRON [Concomitant]
     Indication: HEPATIC FUNCTION ABNORMAL
     Dosage: 2 DF, TID
     Route: 048
     Dates: start: 20110909, end: 20111120
  5. PANTOSIN [Concomitant]
     Indication: CONSTIPATION
     Dosage: 0.5 G, TID
     Route: 048
     Dates: start: 20110201, end: 20111120
  6. PROGRAF [Suspect]
     Dosage: 0.25 MG, UID/QD
     Route: 041
     Dates: start: 20111110, end: 20111113
  7. PROGRAF [Suspect]
     Dosage: 0.12 MG, UID/QD
     Route: 041
     Dates: start: 20111114, end: 20111120
  8. UBIRON [Concomitant]
     Indication: HEPATIC FUNCTION ABNORMAL
     Dosage: 200 MG, TID
     Route: 048
     Dates: start: 20110713, end: 20111120
  9. ACYCLOVIR [Concomitant]
     Dosage: 200 MG, QID
     Route: 048
     Dates: start: 20111031, end: 20111123
  10. PENTAZOCINE LACTATE [Concomitant]
     Indication: PAIN
     Dosage: 7.5 MG, BID
     Route: 041
     Dates: start: 20111106, end: 20111111
  11. MAGMITT [Concomitant]
     Indication: CONSTIPATION
     Dosage: 500 MG, TID
     Route: 048
     Dates: start: 20110201, end: 20111120
  12. CEFTAZIDIME [Concomitant]
     Indication: SEPSIS
     Dosage: 2 G, BID
     Route: 041
     Dates: start: 20111102, end: 20111123
  13. FUNGUARD [Concomitant]
     Indication: INFECTION PROPHYLAXIS
     Dosage: 50 MG, UID/QD
     Route: 041
     Dates: start: 20111026, end: 20111118
  14. FENTANYL CITRATE [Suspect]
     Dosage: 0.2 MG, QOD
     Route: 041
     Dates: start: 20111114, end: 20111114
  15. FENTANYL CITRATE [Suspect]
     Dosage: 0.4 MG, QOD
     Route: 041
     Dates: start: 20111115, end: 20111116
  16. LENDORMIN [Concomitant]
     Indication: INSOMNIA
     Dosage: 0.25 MG, UID/QD
     Route: 048
     Dates: start: 20110118, end: 20111120
  17. METHOTREXATE [Concomitant]
     Indication: PROPHYLAXIS AGAINST GRAFT VERSUS HOST DISEASE
     Dosage: 17 MG, UID/QD
     Route: 041
     Dates: start: 20111112, end: 20111112
  18. FENTANYL CITRATE [Suspect]
     Indication: PAIN
     Dosage: 0.1 MG, QOD
     Route: 041
     Dates: start: 20111112, end: 20111113
  19. FAMOTIDINE [Concomitant]
     Indication: PROPHYLAXIS AGAINST GASTROINTESTINAL ULCER
     Dosage: 10 MG, BID
     Route: 048
     Dates: start: 20071001, end: 20111120
  20. FILGRASTIM [Concomitant]
     Indication: NEUTROPHIL COUNT INCREASED
     Dosage: 300 MG, UID/QD
     Route: 058
     Dates: start: 20111112, end: 20111123
  21. FENTANYL CITRATE [Suspect]
     Dosage: UNK
     Route: 041
     Dates: start: 20111117, end: 20111123
  22. TEICOPLANIN [Concomitant]
     Indication: SEPSIS
     Dosage: 400 MG, UID/QD
     Route: 041
     Dates: start: 20111026, end: 20111123

REACTIONS (16)
  - NERVOUS SYSTEM DISORDER [None]
  - CARDIO-RESPIRATORY ARREST [None]
  - BLOOD POTASSIUM INCREASED [None]
  - HAEMATOMA [None]
  - PERFORMANCE STATUS DECREASED [None]
  - CAROTID ARTERY STENOSIS [None]
  - MOUTH BREATHING [None]
  - RESPIRATORY FAILURE [None]
  - HEADACHE [None]
  - SOMNOLENCE [None]
  - LEUKAEMIC INFILTRATION BRAIN [None]
  - CORD BLOOD TRANSPLANT THERAPY [None]
  - IMMUNOSUPPRESSANT DRUG LEVEL INCREASED [None]
  - DISORIENTATION [None]
  - INFECTION [None]
  - CEREBRAL INFARCTION [None]
